FAERS Safety Report 9093691 (Version 1)
Quarter: 2013Q1

REPORT INFORMATION
  Report Type: Spontaneous
  Country: US (occurrence: None)
  Receive Date: 20130213
  Receipt Date: 20130213
  Transmission Date: 20140127
  Serious: Yes (Other)
  Sender: FDA-Public Use
  Company Number: None

PATIENT
  Sex: Male
  Weight: 76.2 kg

DRUGS (1)
  1. RESTASIS [Suspect]
     Indication: DRY EYE
     Dates: start: 20121115, end: 20121210

REACTIONS (2)
  - Herpes ophthalmic [None]
  - Disease recurrence [None]
